FAERS Safety Report 15867196 (Version 12)
Quarter: 2020Q2

REPORT INFORMATION
  Report Type: Report from Study
  Country: GB (occurrence: GB)
  Receive Date: 20190125
  Receipt Date: 20200603
  Transmission Date: 20200713
  Serious: Yes (Hospitalization, Other)
  Sender: FDA-Public Use
  Company Number: PHHY2018GB067116

PATIENT
  Age: 63 Year
  Sex: Male

DRUGS (7)
  1. ONDANSETRON [Concomitant]
     Active Substance: ONDANSETRON
     Indication: PRODUCT USED FOR UNKNOWN INDICATION
     Route: 030
  2. SANDOSTATIN LAR DEPOT [Suspect]
     Active Substance: OCTREOTIDE ACETATE
     Indication: NEUROENDOCRINE TUMOUR
     Dosage: 50 MG, QMO
     Route: 030
     Dates: start: 201703
  3. SANDOSTATIN LAR DEPOT [Suspect]
     Active Substance: OCTREOTIDE ACETATE
     Dosage: 50 MG, QMO
     Route: 030
     Dates: start: 20181227
  4. SANDOSTATIN LAR DEPOT [Suspect]
     Active Substance: OCTREOTIDE ACETATE
     Dosage: 50 MG, Q3W
     Route: 030
  5. SANDOSTATIN LAR DEPOT [Suspect]
     Active Substance: OCTREOTIDE ACETATE
     Dosage: 50 MG, QMO
     Route: 030
  6. OCTREOTIDE. [Concomitant]
     Active Substance: OCTREOTIDE
     Indication: PRODUCT USED FOR UNKNOWN INDICATION
     Dosage: 1200 MCG, UNK
     Route: 065
  7. OCTREOTIDE. [Concomitant]
     Active Substance: OCTREOTIDE
     Dosage: 1500 MCG, UNK
     Route: 065

REACTIONS (15)
  - Vomiting [Recovering/Resolving]
  - Metatarsalgia [Not Recovered/Not Resolved]
  - Diarrhoea [Unknown]
  - Carcinoid syndrome [Recovering/Resolving]
  - Carcinoid syndrome [Recovered/Resolved]
  - Carcinoid crisis [Unknown]
  - Malaise [Recovered/Resolved]
  - Carcinoid syndrome [Recovered/Resolved]
  - Carcinoid syndrome [Recovered/Resolved]
  - Carcinoid syndrome [Recovered/Resolved]
  - Flushing [Recovering/Resolving]
  - Pyrexia [Recovered/Resolved]
  - Metastases to liver [Unknown]
  - Metastasis [Unknown]
  - Metastases to stomach [Unknown]

NARRATIVE: CASE EVENT DATE: 20180328
